FAERS Safety Report 13360023 (Version 2)
Quarter: 2017Q2

REPORT INFORMATION
  Report Type: Spontaneous
  Country: US (occurrence: US)
  Receive Date: 20170322
  Receipt Date: 20170405
  Transmission Date: 20170830
  Serious: Yes (Other)
  Sender: FDA-Public Use
  Company Number: US-ASTRAZENECA-2017SE28089

PATIENT
  Age: 64 Year
  Sex: Male
  Weight: 68.9 kg

DRUGS (11)
  1. CRESTOR [Suspect]
     Active Substance: ROSUVASTATIN CALCIUM
     Indication: BLOOD TEST ABNORMAL
     Route: 048
  2. DULOXETINE. [Concomitant]
     Active Substance: DULOXETINE
     Indication: ANXIETY
     Route: 048
     Dates: start: 2015, end: 201604
  3. DULOXETINE. [Concomitant]
     Active Substance: DULOXETINE
     Indication: MEMORY IMPAIRMENT
     Route: 048
     Dates: start: 201608
  4. DULOXETINE. [Concomitant]
     Active Substance: DULOXETINE
     Indication: ANXIETY
     Dosage: 60.0MG UNKNOWN
     Route: 048
  5. ARIPLPRAZOLE [Concomitant]
     Dosage: 2.0MG UNKNOWN
  6. DULOXETINE. [Concomitant]
     Active Substance: DULOXETINE
     Indication: MEMORY IMPAIRMENT
     Route: 048
     Dates: start: 2015, end: 201604
  7. DULOXETINE. [Concomitant]
     Active Substance: DULOXETINE
     Indication: ANXIETY
     Route: 048
     Dates: start: 201608
  8. CRESTOR [Suspect]
     Active Substance: ROSUVASTATIN CALCIUM
     Indication: BLOOD TEST ABNORMAL
     Route: 048
     Dates: start: 2010
  9. CRESTOR [Suspect]
     Active Substance: ROSUVASTATIN CALCIUM
     Indication: BLOOD TEST ABNORMAL
     Route: 048
  10. CLONAZEPAM. [Concomitant]
     Active Substance: CLONAZEPAM
     Indication: MEMORY IMPAIRMENT
     Route: 048
     Dates: start: 20170201
  11. DULOXETINE. [Concomitant]
     Active Substance: DULOXETINE
     Indication: MEMORY IMPAIRMENT
     Dosage: 60.0MG UNKNOWN
     Route: 048

REACTIONS (16)
  - Penile size reduced [Unknown]
  - Insomnia [Recovered/Resolved]
  - Dizziness [Recovered/Resolved]
  - Intentional product misuse [Recovered/Resolved]
  - Erythema [Unknown]
  - Memory impairment [Recovering/Resolving]
  - Prostate examination abnormal [Recovered/Resolved]
  - Prostate cancer [Not Recovered/Not Resolved]
  - Anxiety [Unknown]
  - Procedural pain [Unknown]
  - Urinary incontinence [Unknown]
  - Penis disorder [Unknown]
  - Feeling abnormal [Unknown]
  - Asthenia [Unknown]
  - Prostate cancer recurrent [Not Recovered/Not Resolved]
  - Abdominal discomfort [Recovered/Resolved]

NARRATIVE: CASE EVENT DATE: 2011
